FAERS Safety Report 9957151 (Version 1)
Quarter: 2014Q1

REPORT INFORMATION
  Report Type: Report from Study
  Country: US (occurrence: US)
  Receive Date: 20140304
  Receipt Date: 20140304
  Transmission Date: 20141002
  Serious: Yes (Hospitalization)
  Sender: FDA-Public Use
  Company Number: US-ABBVIE-13P-163-1100085-00

PATIENT
  Age: 47 Year
  Sex: Female
  Weight: 83.99 kg

DRUGS (7)
  1. HUMIRA [Suspect]
     Indication: RHEUMATOID ARTHRITIS
  2. HUMIRA [Suspect]
     Indication: CROHN^S DISEASE
     Dosage: GRADUALLY TAPERED
     Dates: end: 201112
  3. HUMIRA [Suspect]
     Dates: start: 201206, end: 201206
  4. HUMIRA [Suspect]
     Dates: start: 20130531
  5. VITAMINS [Concomitant]
     Indication: VITAMIN SUPPLEMENTATION
  6. PROVENTIL [Concomitant]
     Indication: ASTHMA
     Dosage: INHALER
     Route: 055
  7. PROVENTIL [Concomitant]
     Indication: SEASONAL ALLERGY

REACTIONS (10)
  - Peritonsillar abscess [Recovered/Resolved]
  - Rheumatoid arthritis [Not Recovered/Not Resolved]
  - Fall [Recovered/Resolved]
  - Injury [Recovered/Resolved]
  - Joint swelling [Recovered/Resolved]
  - Joint swelling [Recovered/Resolved]
  - Joint swelling [Recovered/Resolved]
  - Back pain [Not Recovered/Not Resolved]
  - Arthralgia [Recovered/Resolved]
  - Rheumatoid arthritis [Not Recovered/Not Resolved]
